FAERS Safety Report 15861676 (Version 1)
Quarter: 2019Q1

REPORT INFORMATION
  Report Type: Spontaneous
  Country: US (occurrence: US)
  Receive Date: 20190124
  Receipt Date: 20190124
  Transmission Date: 20190417
  Serious: No
  Sender: FDA-Public Use
  Company Number: US-ASTRAZENECA-2019SE00205

PATIENT
  Age: 854 Month
  Sex: Male
  Weight: 136.1 kg

DRUGS (5)
  1. FASENRA [Suspect]
     Active Substance: BENRALIZUMAB
     Indication: ASTHMA
     Dosage: UNKNOWN
     Route: 058
     Dates: start: 201812
  2. BROVANA [Concomitant]
     Active Substance: ARFORMOTEROL TARTRATE
  3. PREDNISONE. [Concomitant]
     Active Substance: PREDNISONE
     Indication: BRONCHIAL SECRETION RETENTION
     Route: 048
  4. PREDNISONE. [Concomitant]
     Active Substance: PREDNISONE
     Indication: BRONCHIAL SECRETION RETENTION
     Route: 048
     Dates: start: 201812
  5. XOLAIR [Concomitant]
     Active Substance: OMALIZUMAB
     Indication: ASTHMA
     Dosage: 3, 125MG INJECTIONS , EVERY TWO WEEKS

REACTIONS (7)
  - Productive cough [Unknown]
  - Hypersensitivity [Not Recovered/Not Resolved]
  - Body height decreased [Unknown]
  - Off label use [Unknown]
  - Product use issue [Unknown]
  - Fungal infection [Unknown]
  - Bronchial secretion retention [Unknown]

NARRATIVE: CASE EVENT DATE: 201610
